FAERS Safety Report 9774221 (Version 2)
Quarter: 2014Q1

REPORT INFORMATION
  Report Type: Spontaneous
  Country: GR (occurrence: GR)
  Receive Date: 20131220
  Receipt Date: 20140124
  Transmission Date: 20141002
  Serious: Yes (Hospitalization)
  Sender: FDA-Public Use
  Company Number: GR-SHIRE-ALL1-2013-08746

PATIENT
  Age: 66 Year
  Sex: Female

DRUGS (5)
  1. XAGRID [Suspect]
     Indication: POLYCYTHAEMIA
     Dosage: 0.5 MG, 2X/DAY:BID
     Route: 048
     Dates: start: 20131028, end: 20131211
  2. EUCREAS [Concomitant]
     Indication: PRODUCT USED FOR UNKNOWN INDICATION
     Dosage: UNK, UNKNOWN
     Route: 048
  3. L-THYROXIN [Concomitant]
     Indication: PRODUCT USED FOR UNKNOWN INDICATION
     Dosage: 125 ?G, UNKNOWN
     Route: 048
  4. SALOSPIR [Concomitant]
     Indication: PRODUCT USED FOR UNKNOWN INDICATION
     Dosage: UNK, UNKNOWN
     Route: 048
  5. EXFORGE [Concomitant]
     Indication: PRODUCT USED FOR UNKNOWN INDICATION
     Dosage: UNK, UNKNOWN
     Route: 048

REACTIONS (6)
  - Hypersensitivity [Recovered/Resolved]
  - Erythema [Recovered/Resolved]
  - Eyelid oedema [Recovered/Resolved]
  - Pruritus [Recovered/Resolved]
  - Rash generalised [Recovered/Resolved]
  - Off label use [Recovered/Resolved]
